FAERS Safety Report 16895614 (Version 1)
Quarter: 2019Q4

REPORT INFORMATION
  Report Type: Spontaneous
  Country: US (occurrence: US)
  Receive Date: 20191007
  Receipt Date: 20191007
  Transmission Date: 20200122
  Serious: Yes (Hospitalization)
  Sender: FDA-Public Use
  Company Number: None

PATIENT
  Age: 58 Year
  Sex: Female
  Weight: 48.15 kg

DRUGS (3)
  1. SOMADERM GEL (HOMEOPATHICS) [Suspect]
     Active Substance: HOMEOPATHICS
     Indication: MUSCULAR WEAKNESS
     Dosage: ?          OTHER STRENGTH:MAXIMUM;QUANTITY:2 GEL;?
     Route: 061
     Dates: start: 20180815, end: 20190501
  2. SYNTHROID [Concomitant]
     Active Substance: LEVOTHYROXINE SODIUM
  3. STEROIDS [Concomitant]
     Active Substance: UNSPECIFIED INGREDIENT

REACTIONS (4)
  - Treatment failure [None]
  - Thyroid disorder [None]
  - Renal failure [None]
  - Adrenal insufficiency [None]

NARRATIVE: CASE EVENT DATE: 20190915
